FAERS Safety Report 4338885-X (Version None)
Quarter: 2004Q2

REPORT INFORMATION
  Report Type: 
  Country: None (occurrence: None)
  Receive Date: 20040409
  Receipt Date: 20040329
  Transmission Date: 20050107
  Serious: Yes (Hospitalization, Disabling, Other)
  Sender: FDA-Public Use
  Company Number: 2003029605

PATIENT
  Age: 33 Year
  Sex: Male

DRUGS (13)
  1. LIPITOR [Suspect]
     Indication: BLOOD CHOLESTEROL INCREASED
     Dosage: 10 MG (DAILY)
     Dates: start: 19980101
  2. LISINOPRIL [Suspect]
     Indication: HYPERTENSION
     Dosage: 10 MG (DAILY)
     Dates: start: 19981010, end: 19981101
  3. NAPROXEN SODIUM [Suspect]
     Indication: LIMB DISCOMFORT
     Dosage: ORAL
     Route: 048
     Dates: start: 20020301, end: 20020309
  4. BUPROPION HYDROCHLORIDE [Concomitant]
  5. FLUTICASONE PROPIONATE [Concomitant]
  6. ALBUTEROL SULFATE [Concomitant]
  7. FLUVOXAMINE MALEATE [Concomitant]
  8. PAROXETINE HCL [Concomitant]
  9. METHYLPHENIDATE HCL [Concomitant]
  10. ASPIRIN [Concomitant]
  11. METFORMIN HYDROCHLORIDE [Concomitant]
  12. MULTIPLE VITAMINS (ERGOCALCIFEROL, ASCORBIC ACID, TOCOPHEROL, FOLIC AC [Concomitant]
  13. TRAZODONE HCL [Concomitant]

REACTIONS (18)
  - ANXIETY [None]
  - BLOOD BICARBONATE DECREASED [None]
  - BLOOD CALCIUM INCREASED [None]
  - BLOOD GLUCOSE DECREASED [None]
  - BLOOD LACTATE DEHYDROGENASE INCREASED [None]
  - BLOOD PARATHYROID HORMONE DECREASED [None]
  - BLOOD PHOSPHORUS INCREASED [None]
  - HAEMATOCRIT DECREASED [None]
  - HAEMODIALYSIS [None]
  - HAEMOGLOBIN DECREASED [None]
  - MEAN CELL HAEMOGLOBIN CONCENTRATION DECREASED [None]
  - MEDICAL DEVICE COMPLICATION [None]
  - PAIN [None]
  - PLATELET COUNT INCREASED [None]
  - RED BLOOD CELL COUNT DECREASED [None]
  - RENAL FAILURE ACUTE [None]
  - RHABDOMYOLYSIS [None]
  - TRANSFERRIN SATURATION DECREASED [None]
